FAERS Safety Report 20567596 (Version 1)
Quarter: 2022Q1

REPORT INFORMATION
  Report Type: Spontaneous
  Country: US (occurrence: None)
  Receive Date: 20220308
  Receipt Date: 20220308
  Transmission Date: 20220423
  Serious: Yes (Hospitalization, Disabling)
  Sender: FDA-Public Use
  Company Number: None

PATIENT
  Age: 73 Year
  Sex: Male

DRUGS (2)
  1. EVUSHELD [Suspect]
     Active Substance: CILGAVIMAB\TIXAGEVIMAB
  2. EVUSHELD [Concomitant]
     Active Substance: CILGAVIMAB\TIXAGEVIMAB

REACTIONS (4)
  - Myopathy [None]
  - Wheelchair user [None]
  - Muscular weakness [None]
  - Muscle oedema [None]

NARRATIVE: CASE EVENT DATE: 20220201
